FAERS Safety Report 9841605 (Version 1)
Quarter: 2014Q1

REPORT INFORMATION
  Report Type: Spontaneous
  Country: US (occurrence: US)
  Receive Date: 20140124
  Receipt Date: 20140124
  Transmission Date: 20141002
  Serious: Yes (Hospitalization, Other)
  Sender: FDA-Public Use
  Company Number: US-ASTRAZENECA-2014SE03877

PATIENT
  Age: 79 Year
  Sex: Male
  Weight: 83.9 kg

DRUGS (5)
  1. CRESTOR [Suspect]
     Indication: BLOOD CHOLESTEROL ABNORMAL
     Route: 048
  2. CRESTOR [Suspect]
     Indication: BLOOD CHOLESTEROL ABNORMAL
     Route: 048
  3. LITHIUM [Concomitant]
     Indication: BIPOLAR DISORDER
  4. UNKNOWN MEDICATIONS [Concomitant]
     Indication: BLOOD CHOLESTEROL ABNORMAL
  5. SIMVASTATIN [Concomitant]

REACTIONS (6)
  - Glaucoma [Unknown]
  - Cataract [Unknown]
  - Prostatic disorder [Unknown]
  - Heart rate decreased [Unknown]
  - Headache [Unknown]
  - Intentional drug misuse [Unknown]
